FAERS Safety Report 25458499 (Version 1)
Quarter: 2025Q2

REPORT INFORMATION
  Report Type: Spontaneous
  Country: DK (occurrence: DK)
  Receive Date: 20250620
  Receipt Date: 20250620
  Transmission Date: 20250717
  Serious: Yes (Other)
  Sender: NOVO NORDISK
  Company Number: DK-NOVOPROD-1459276

PATIENT
  Age: 21 Year
  Sex: Female

DRUGS (1)
  1. WEGOVY [Suspect]
     Active Substance: SEMAGLUTIDE
     Indication: Product use in unapproved indication
     Dates: start: 202303

REACTIONS (5)
  - Abortion spontaneous [Unknown]
  - Haemorrhage in pregnancy [Unknown]
  - Pain [Unknown]
  - Maternal exposure during pregnancy [Unknown]
  - Product use issue [Unknown]
